FAERS Safety Report 5620682-6 (Version None)
Quarter: 2008Q1

REPORT INFORMATION
  Report Type: 
  Country: None (occurrence: None)
  Receive Date: 20080208
  Receipt Date: 20080128
  Transmission Date: 20080703
  Serious: Yes (Other)
  Sender: FDA-Public Use
  Company Number: TH-GILEAD-2007-0014520

PATIENT
  Sex: Male

DRUGS (10)
  1. VIREAD [Suspect]
     Dates: start: 20031010, end: 20041007
  2. VIREAD [Suspect]
     Dates: start: 20050225, end: 20050302
  3. EMTRIVA [Concomitant]
     Dates: start: 20050302
  4. SAQUINAVIR [Concomitant]
     Dates: start: 20031010, end: 20041007
  5. SAQUINAVIR [Concomitant]
     Dates: start: 20050225, end: 20050302
  6. SAQUINAVIR [Concomitant]
     Dates: start: 20050302
  7. RITONAVIR [Concomitant]
     Dates: start: 20031010, end: 20041007
  8. RITONAVIR [Concomitant]
     Dates: start: 20050225, end: 20050302
  9. RITONAVIR [Concomitant]
     Dates: start: 20050302
  10. HIDIL [Concomitant]

REACTIONS (3)
  - BLOOD BILIRUBIN INCREASED [None]
  - BLOOD TRIGLYCERIDES INCREASED [None]
  - HEPATITIS [None]
